FAERS Safety Report 5566538-9 (Version None)
Quarter: 2007Q4

REPORT INFORMATION
  Report Type: 
  Country: None (occurrence: None)
  Receive Date: 20071219
  Receipt Date: 20071214
  Transmission Date: 20080405
  Serious: Yes (Life-Threatening, Hospitalization)
  Sender: FDA-Public Use
  Company Number: FR-JNJFOC-20071204388

PATIENT
  Age: 33 Year
  Sex: Female

DRUGS (2)
  1. CAELYX [Suspect]
     Indication: METASTASES TO LUNG
     Dosage: DEPENDING ON EACH CYCLE
     Route: 042
  2. AVASTATIN [Suspect]
     Indication: METASTASES TO LUNG
     Dosage: DEPENDING ON EACH CYCLE, 3 INFUSIONS
     Route: 042

REACTIONS (1)
  - LEUKOENCEPHALOPATHY [None]
